FAERS Safety Report 9980885 (Version 1)
Quarter: 2014Q1

REPORT INFORMATION
  Report Type: Spontaneous
  Country: US (occurrence: US)
  Receive Date: 20140307
  Receipt Date: 20140307
  Transmission Date: 20141002
  Serious: No
  Sender: FDA-Public Use
  Company Number: US-GLAXOSMITHKLINE-A1017048A

PATIENT
  Age: 73 Year
  Sex: Male

DRUGS (10)
  1. ROPINIROLE [Suspect]
     Indication: MUSCLE SPASMS
     Dosage: .25MG PER DAY
     Route: 048
     Dates: start: 201209
  2. ARICEPT [Suspect]
     Dosage: 23MG PER DAY
     Dates: start: 2009
  3. NAMENDA [Suspect]
     Route: 048
     Dates: start: 2009
  4. BENAZAPRIL [Concomitant]
  5. LIPITOR [Concomitant]
  6. ZETIA [Concomitant]
  7. TOPROL [Concomitant]
  8. ALLOPURINOL [Concomitant]
  9. LEXAPRO [Concomitant]
  10. DIVALPROEX SODIUM [Concomitant]

REACTIONS (1)
  - Weight decreased [Not Recovered/Not Resolved]
